FAERS Safety Report 10521893 (Version 1)
Quarter: 2014Q4

REPORT INFORMATION
  Report Type: Spontaneous
  Country: US (occurrence: None)
  Receive Date: 20141014
  Receipt Date: 20141014
  Transmission Date: 20150528
  Serious: Yes (Life-Threatening, Hospitalization, Other)
  Sender: FDA-Public Use
  Company Number: LH201400291

PATIENT
  Age: 0 Day
  Sex: Male
  Weight: 1.1 kg

DRUGS (1)
  1. MAKENA [Suspect]
     Active Substance: HYDROXYPROGESTERONE CAPROATE
     Indication: EXPOSURE DURING PREGNANCY
     Dosage: 250 MG, ONCE WEEKLY
     Dates: start: 20140710, end: 20140918

REACTIONS (3)
  - Foetal heart rate deceleration abnormality [None]
  - Premature baby [None]
  - Caesarean section [None]

NARRATIVE: CASE EVENT DATE: 20140928
